FAERS Safety Report 5373542-2 (Version None)
Quarter: 2007Q2

REPORT INFORMATION
  Report Type: 
  Country: None (occurrence: None)
  Receive Date: 20070628
  Receipt Date: 20070620
  Transmission Date: 20071010
  Serious: Yes (Hospitalization)
  Sender: FDA-Public Use
  Company Number: B0475542A

PATIENT
  Age: 41 Year
  Sex: Female
  Weight: 65 kg

DRUGS (4)
  1. SEROXAT [Suspect]
     Indication: POSTPARTUM DEPRESSION
     Route: 048
  2. MIRTAZAPINE [Concomitant]
     Indication: POSTPARTUM DEPRESSION
     Route: 065
  3. SULPIRIDE [Concomitant]
     Indication: POSTPARTUM DEPRESSION
     Route: 065
  4. DEANXIT [Concomitant]
     Indication: POSTPARTUM DEPRESSION
     Route: 065

REACTIONS (2)
  - ANXIETY [None]
  - DRUG INEFFECTIVE [None]
